FAERS Safety Report 18422212 (Version 1)
Quarter: 2020Q4

REPORT INFORMATION
  Report Type: Spontaneous
  Country: HN (occurrence: HN)
  Receive Date: 20201024
  Receipt Date: 20201024
  Transmission Date: 20210114
  Serious: Yes (Other)
  Sender: FDA-Public Use
  Company Number: HN-ROCHE-2700480

PATIENT
  Age: 62 Year
  Sex: Male

DRUGS (11)
  1. RITUXIMAB. [Suspect]
     Active Substance: RITUXIMAB
     Indication: LYMPHADENOPATHY
     Dosage: DOSE WAS NOT REPORTED (6 CYCLES)
     Route: 042
     Dates: start: 202001, end: 202008
  2. VINCRISTINE [Concomitant]
     Active Substance: VINCRISTINE
  3. DOXORUBICIN [Concomitant]
     Active Substance: DOXORUBICIN
  4. METHYLPREDNISOLONE. [Concomitant]
     Active Substance: METHYLPREDNISOLONE
     Indication: LYMPHADENOPATHY
  5. PREDNISONE. [Concomitant]
     Active Substance: PREDNISONE
  6. RITUXIMAB. [Suspect]
     Active Substance: RITUXIMAB
     Indication: DIFFUSE LARGE B-CELL LYMPHOMA
     Dosage: DOSE WAS NOT REPORTED (8 CYCLES)
     Route: 041
     Dates: start: 201812, end: 201908
  7. IRBESARTAN. [Concomitant]
     Active Substance: IRBESARTAN
     Indication: HYPERTENSION
     Route: 048
  8. CYTARABINE. [Concomitant]
     Active Substance: CYTARABINE
  9. ETOPOSIDE. [Concomitant]
     Active Substance: ETOPOSIDE
  10. CYCLOPHOSPHAMIDE. [Concomitant]
     Active Substance: CYCLOPHOSPHAMIDE
  11. METHYLPREDNISOLONE. [Concomitant]
     Active Substance: METHYLPREDNISOLONE
     Indication: DIFFUSE LARGE B-CELL LYMPHOMA
     Dosage: DOSE WAS NOT REPORTED (6 CYCLES)
     Route: 042
     Dates: start: 202001, end: 202008

REACTIONS (2)
  - Therapy partial responder [Unknown]
  - Disease progression [Unknown]
